FAERS Safety Report 20584703 (Version 1)
Quarter: 2022Q1

REPORT INFORMATION
  Report Type: Spontaneous
  Country: US (occurrence: US)
  Receive Date: 20220311
  Receipt Date: 20220311
  Transmission Date: 20220423
  Serious: Yes (Other)
  Sender: FDA-Public Use
  Company Number: US-UCBSA-2022013180

PATIENT
  Sex: Female

DRUGS (19)
  1. KEPPRA [Suspect]
     Active Substance: LEVETIRACETAM
     Indication: Epilepsia partialis continua
     Dosage: UNK
  2. KEPPRA [Suspect]
     Active Substance: LEVETIRACETAM
     Indication: Status epilepticus
     Dosage: HIGH DOSE
  3. VIMPAT [Suspect]
     Active Substance: LACOSAMIDE
     Indication: Product used for unknown indication
     Dosage: UNK
  4. LORAZEPAM [Concomitant]
     Active Substance: LORAZEPAM
     Indication: Epilepsia partialis continua
  5. IMMUNE GLOBULIN NOS [Concomitant]
     Active Substance: IMMUNE GLOBULIN NOS
     Indication: Rasmussen encephalitis
  6. PHENOBARBITAL [Concomitant]
     Active Substance: PHENOBARBITAL
     Indication: Rasmussen encephalitis
  7. PHENOBARBITAL [Concomitant]
     Active Substance: PHENOBARBITAL
     Indication: Partial seizures
  8. OXCARBAZEPINE [Concomitant]
     Active Substance: OXCARBAZEPINE
     Indication: Simple partial seizures
  9. FOSPHENYTOIN [Concomitant]
     Active Substance: FOSPHENYTOIN
     Indication: Simple partial seizures
  10. FOSPHENYTOIN [Concomitant]
     Active Substance: FOSPHENYTOIN
     Indication: Partial seizures
  11. MIDAZOLAM [Concomitant]
     Active Substance: MIDAZOLAM
     Indication: Simple partial seizures
  12. MIDAZOLAM [Concomitant]
     Active Substance: MIDAZOLAM
     Indication: Partial seizures
  13. PENTOBARBITAL [Concomitant]
     Active Substance: PENTOBARBITAL
     Indication: Coma
  14. CLONAZEPAM [Concomitant]
     Active Substance: CLONAZEPAM
     Indication: Epilepsia partialis continua
     Dosage: .5 MILLIGRAM, 3X/DAY (TID)
  15. CLONAZEPAM [Concomitant]
     Active Substance: CLONAZEPAM
     Dosage: .75 MILLIGRAM, 3X/DAY (TID)
  16. TOPIRAMATE [Concomitant]
     Active Substance: TOPIRAMATE
     Indication: Epilepsia partialis continua
     Dosage: 6 MG/KG TWICE DAILY
  17. PHENYTOIN [Concomitant]
     Active Substance: PHENYTOIN
     Indication: Epilepsia partialis continua
  18. VIGABATRIN [Concomitant]
     Active Substance: VIGABATRIN
     Indication: Epilepsia partialis continua
  19. DIAZEPAM [Concomitant]
     Active Substance: DIAZEPAM
     Indication: Epilepsia partialis continua
     Dosage: UNK, AS NEEDED (PRN)

REACTIONS (4)
  - Seizure [Recovering/Resolving]
  - Status epilepticus [Unknown]
  - Drug ineffective for unapproved indication [Unknown]
  - Product use in unapproved indication [Unknown]
